FAERS Safety Report 6695674-9 (Version None)
Quarter: 2010Q2

REPORT INFORMATION
  Report Type: 
  Country: None (occurrence: None)
  Receive Date: 20100426
  Receipt Date: 20100414
  Transmission Date: 20101027
  Serious: No
  Sender: FDA-Public Use
  Company Number: US-BIOGENIDEC-2010BI012684

PATIENT
  Age: 37 Year
  Sex: Female

DRUGS (1)
  1. AVONEX [Suspect]
     Indication: MULTIPLE SCLEROSIS
     Route: 030
     Dates: start: 20100309

REACTIONS (6)
  - DIZZINESS [None]
  - EAR INFECTION [None]
  - HEADACHE [None]
  - NIGHTMARE [None]
  - PRURITUS [None]
  - RASH [None]
